FAERS Safety Report 9410213 (Version 1)
Quarter: 2013Q3

REPORT INFORMATION
  Report Type: Spontaneous
  Country: US (occurrence: US)
  Receive Date: 20130719
  Receipt Date: 20130719
  Transmission Date: 20140515
  Serious: Yes (Hospitalization)
  Sender: FDA-Public Use
  Company Number: US-GLAXOSMITHKLINE-A1034072A

PATIENT
  Age: 78 Year
  Sex: Female

DRUGS (6)
  1. NICORETTE WHITE ICE OTC 4MG [Suspect]
     Indication: SMOKING CESSATION THERAPY
     Dosage: 4MG TEN TIMES PER DAY
     Route: 002
  2. B12 [Concomitant]
  3. ANTI-HYPERTENSIVE [Concomitant]
     Indication: HYPERTENSION
  4. B6 [Concomitant]
  5. CALCIUM [Concomitant]
  6. XANAX [Concomitant]

REACTIONS (8)
  - Nicotine dependence [Not Recovered/Not Resolved]
  - Intentional drug misuse [Not Recovered/Not Resolved]
  - Lung disorder [Unknown]
  - Neoplasm malignant [Unknown]
  - Dyspnoea [Recovering/Resolving]
  - Surgery [Recovered/Resolved]
  - Oxygen saturation decreased [Recovering/Resolving]
  - Pneumonia [Recovered/Resolved]
